FAERS Safety Report 23651666 (Version 1)
Quarter: 2024Q1

REPORT INFORMATION
  Report Type: Spontaneous
  Country: SG (occurrence: None)
  Receive Date: 20240320
  Receipt Date: 20240320
  Transmission Date: 20240410
  Serious: Yes (Hospitalization)
  Sender: FDA-Public Use
  Company Number: SG-ROCHE-3525730

PATIENT
  Age: 0 Year
  Sex: Female

DRUGS (13)
  1. ATEZOLIZUMAB [Suspect]
     Active Substance: ATEZOLIZUMAB
     Indication: Colorectal cancer
     Dosage: PATIENT RECEIVED MOST RECENT DOSE OF ATEZOLIZUMAB PRIOR TO ONSET OF AE ON 14/DEC/2023
     Route: 041
     Dates: start: 20231123
  2. ZANZALINTINIB [Suspect]
     Active Substance: ZANZALINTINIB
     Indication: Colorectal cancer
     Dosage: PATIENT RECEIVED MOST RECENT DOSE OF XL 092 (ZANZALINTINIB) PRIOR TO ONSET OF AE ON 22/DEC/2023.
     Route: 048
     Dates: start: 20231123
  3. ACRIVASTINE [Concomitant]
     Active Substance: ACRIVASTINE
     Dates: start: 20231214, end: 20231214
  4. ASCORBIC ACID [Concomitant]
     Active Substance: ASCORBIC ACID
     Dates: start: 20220501
  5. CHOLECALCIFEROL [Concomitant]
     Active Substance: CHOLECALCIFEROL
     Dates: start: 20220101
  6. HYDROCORTISONE [Concomitant]
     Active Substance: HYDROCORTISONE
     Dates: start: 20231214, end: 20231214
  7. ACETAMINOPHEN [Concomitant]
     Active Substance: ACETAMINOPHEN
     Dates: start: 20231214, end: 20231214
  8. RABEPRAZOLE SODIUM [Concomitant]
     Active Substance: RABEPRAZOLE SODIUM
     Dates: start: 20231215
  9. PREDNISOLONE [Concomitant]
     Active Substance: PREDNISOLONE
     Dates: start: 20231215
  10. PREGABALIN [Concomitant]
     Active Substance: PREGABALIN
     Dates: start: 20220501
  11. PYRIDOXINE [Concomitant]
     Active Substance: PYRIDOXINE
     Dates: start: 20220501
  12. ZOLPIDEM TARTRATE [Concomitant]
     Active Substance: ZOLPIDEM TARTRATE
     Dates: start: 20231206
  13. FEXOFENADINE [Concomitant]
     Active Substance: FEXOFENADINE HYDROCHLORIDE
     Dates: start: 20231206

REACTIONS (4)
  - Pyrexia [Recovered/Resolved]
  - Pneumonia [Recovered/Resolved]
  - Urinary tract infection [Recovered/Resolved]
  - Asthenia [Recovered/Resolved]

NARRATIVE: CASE EVENT DATE: 20231223
